FAERS Safety Report 6520595-1 (Version None)
Quarter: 2009Q4

REPORT INFORMATION
  Report Type: 
  Country: None (occurrence: None)
  Receive Date: 20091229
  Receipt Date: 20091217
  Transmission Date: 20100525
  Serious: Yes (Hospitalization)
  Sender: FDA-Public Use
  Company Number: JP-BRISTOL-MYERS SQUIBB COMPANY-14904999

PATIENT
  Age: 85 Year
  Sex: Male

DRUGS (6)
  1. AVAPRO [Suspect]
     Indication: HYPERTENSION
     Route: 048
     Dates: start: 20090101
  2. MEVALOTIN [Concomitant]
     Route: 048
  3. PLAVIX [Concomitant]
     Route: 048
  4. VESICARE [Concomitant]
     Route: 048
  5. AMARYL [Concomitant]
     Route: 048
  6. MUCOSTA [Concomitant]
     Route: 048

REACTIONS (3)
  - DEHYDRATION [None]
  - POLLAKIURIA [None]
  - RENAL IMPAIRMENT [None]
